FAERS Safety Report 9328222 (Version 1)
Quarter: 2013Q2

REPORT INFORMATION
  Report Type: Spontaneous
  Country: US (occurrence: US)
  Receive Date: 20130604
  Receipt Date: 20130604
  Transmission Date: 20140414
  Serious: No
  Sender: FDA-Public Use
  Company Number: US-SANOFI-AVENTIS-2012SA038990

PATIENT
  Sex: Female

DRUGS (3)
  1. LANTUS [Suspect]
     Route: 058
     Dates: start: 20120522
  2. SOLOSTAR [Suspect]
     Dates: start: 20120522
  3. ALL OTHER THERAPEUTIC PRODUCTS [Suspect]
     Route: 065
     Dates: start: 201205

REACTIONS (2)
  - Erythema [Not Recovered/Not Resolved]
  - Unevaluable event [Not Recovered/Not Resolved]
